FAERS Safety Report 13268350 (Version 11)
Quarter: 2018Q3

REPORT INFORMATION
  Report Type: Report from Study
  Country: GB (occurrence: GB)
  Receive Date: 20170224
  Receipt Date: 20180813
  Transmission Date: 20181010
  Serious: Yes (Hospitalization, Other)
  Sender: FDA-Public Use
  Company Number: GB-BRISTOL-MYERS SQUIBB COMPANY-BMS-2017-011917

PATIENT
  Age: 44 Year
  Sex: Female

DRUGS (1)
  1. ABATACEPT [Suspect]
     Active Substance: ABATACEPT
     Indication: RHEUMATOID ARTHRITIS
     Dosage: 125 MG, QWK
     Route: 058
     Dates: start: 20130920

REACTIONS (17)
  - Palpitations [Unknown]
  - Gastroenteritis viral [Unknown]
  - Migraine [Unknown]
  - Urinary tract infection [Unknown]
  - Viral infection [Unknown]
  - Heart rate irregular [Unknown]
  - Emotional distress [Unknown]
  - Vomiting [Unknown]
  - Feeling abnormal [Unknown]
  - Cardiac operation [Unknown]
  - Blood iron decreased [Unknown]
  - Emotional disorder [Unknown]
  - Nausea [Unknown]
  - Limb discomfort [Unknown]
  - Adverse event [Unknown]
  - Lower respiratory tract infection [Unknown]
  - Cardiac disorder [Unknown]

NARRATIVE: CASE EVENT DATE: 20180129
